FAERS Safety Report 5282982-1 (Version None)
Quarter: 2007Q2

REPORT INFORMATION
  Report Type: 
  Country: None (occurrence: None)
  Receive Date: 20070402
  Receipt Date: 20070327
  Transmission Date: 20071010
  Serious: Yes (Hospitalization)
  Sender: FDA-Public Use
  Company Number: JP-BRISTOL-MYERS SQUIBB COMPANY-13732060

PATIENT
  Sex: Female

DRUGS (1)
  1. PARAPLATIN [Suspect]
     Indication: LIP AND/OR ORAL CAVITY CANCER

REACTIONS (1)
  - SKIN EXFOLIATION [None]
